FAERS Safety Report 25109663 (Version 1)
Quarter: 2025Q1

REPORT INFORMATION
  Report Type: Report from Study
  Country: US (occurrence: US)
  Receive Date: 20250323
  Receipt Date: 20250323
  Transmission Date: 20250408
  Serious: Yes (Hospitalization, Other)
  Sender: ABBVIE
  Company Number: US-ABBVIE-6154309

PATIENT
  Age: 74 Year
  Sex: Female

DRUGS (1)
  1. RESTASIS [Suspect]
     Active Substance: CYCLOSPORINE
     Indication: Product used for unknown indication
     Dosage: FORM STRENGTH 0.5 MILLIGRAM?START DATE TEXT: 5-6 YEARS AGO?FREQUENCY TEXT: TWICE A DAY ON EACH EYE
     Route: 031
     Dates: end: 20250228

REACTIONS (3)
  - Cardiac disorder [Unknown]
  - Arterial repair [Unknown]
  - Arterial repair [Unknown]

NARRATIVE: CASE EVENT DATE: 20240101
